FAERS Safety Report 9550862 (Version 3)
Quarter: 2014Q3

REPORT INFORMATION
  Report Type: Report from Study
  Country: US (occurrence: US)
  Receive Date: 20130924
  Receipt Date: 20140812
  Transmission Date: 20150326
  Serious: Yes (Other)
  Sender: FDA-Public Use
  Company Number: US-SANOFI-AVENTIS-2013SA039867

PATIENT
  Age: 49 Year
  Sex: Male

DRUGS (1)
  1. AUBAGIO [Suspect]
     Active Substance: TERIFLUNOMIDE
     Indication: MULTIPLE SCLEROSIS
     Route: 048
     Dates: start: 20130313, end: 20140801

REACTIONS (11)
  - Condition aggravated [Unknown]
  - Asthenia [Unknown]
  - Diarrhoea [Not Recovered/Not Resolved]
  - Paraesthesia [Unknown]
  - Mobility decreased [Not Recovered/Not Resolved]
  - Abdominal discomfort [Not Recovered/Not Resolved]
  - Neuralgia [Unknown]
  - Gait disturbance [Not Recovered/Not Resolved]
  - Quality of life decreased [Unknown]
  - Headache [Not Recovered/Not Resolved]
  - Back pain [Not Recovered/Not Resolved]

NARRATIVE: CASE EVENT DATE: 2013
